FAERS Safety Report 8999238 (Version 1)
Quarter: 2013Q1

REPORT INFORMATION
  Report Type: Spontaneous
  Country: US (occurrence: US)
  Receive Date: 20130103
  Receipt Date: 20130103
  Transmission Date: 20140127
  Serious: Yes (Hospitalization)
  Sender: FDA-Public Use
  Company Number: PHEH2013US000451

PATIENT
  Age: 57 Year
  Sex: Female

DRUGS (16)
  1. TASIGNA [Suspect]
     Dosage: 200 MG, BID
     Route: 048
  2. TASIGNA [Suspect]
     Dosage: UNK
  3. METFORMIN [Concomitant]
     Dosage: 500 MG, UNK
  4. GLIPIZIDE [Concomitant]
     Dosage: 10 MG, UNK
     Route: 048
  5. LANTUS [Concomitant]
  6. SOLUSTON [Concomitant]
  7. METAPROLOL [Concomitant]
  8. COUMADIN ^BOOTS^ [Concomitant]
     Dosage: 2.5 MG, UNK
     Route: 048
  9. CYMBALTA [Concomitant]
  10. OMEPRAZOLE [Concomitant]
     Dosage: 40 MG, UNK
     Route: 048
  11. GABAPENTIN [Concomitant]
     Dosage: 100 MG, UNK
     Route: 048
  12. LISINOPRIL [Concomitant]
     Dosage: 2.5 MG, UNK
     Route: 048
  13. QVAR [Concomitant]
     Dosage: 40 UG, UNK
     Route: 048
  14. COMBIVENT                               /GFR/ [Concomitant]
     Route: 048
  15. ZITHROMAX [Concomitant]
     Route: 048
  16. ZOFRAN [Concomitant]
     Dosage: 8 MG, UNK
     Route: 048

REACTIONS (1)
  - Electrocardiogram QT prolonged [Recovered/Resolved]
